FAERS Safety Report 4981757-8 (Version None)
Quarter: 2006Q2

REPORT INFORMATION
  Report Type: 
  Country: None (occurrence: None)
  Receive Date: 20060425
  Receipt Date: 20060330
  Transmission Date: 20061013
  Serious: Yes (Death, Hospitalization)
  Sender: FDA-Public Use
  Company Number: FR-AVENTIS-200611160FR

PATIENT
  Age: 59 Year
  Sex: Female

DRUGS (2)
  1. ARAVA [Suspect]
     Indication: RHEUMATOID ARTHRITIS
     Route: 048
     Dates: start: 20020501, end: 20060303
  2. METHOTREXATE [Suspect]

REACTIONS (12)
  - BETA HAEMOLYTIC STREPTOCOCCAL INFECTION [None]
  - CARDIAC FAILURE [None]
  - CARDIOGENIC SHOCK [None]
  - DIARRHOEA [None]
  - HYPERTHERMIA [None]
  - HYPOTENSION [None]
  - NECROTISING FASCIITIS [None]
  - OLIGURIA [None]
  - ORGAN FAILURE [None]
  - SEPTIC SHOCK [None]
  - TACHYCARDIA [None]
  - WOUND [None]
